FAERS Safety Report 25458463 (Version 1)
Quarter: 2025Q2

REPORT INFORMATION
  Report Type: Spontaneous
  Country: NL (occurrence: NL)
  Receive Date: 20250620
  Receipt Date: 20250620
  Transmission Date: 20250717
  Serious: Yes (Death, Other)
  Sender: CHEPLAPHARM
  Company Number: NL-EUROCEPT-EC20250102

PATIENT
  Age: 20 Year
  Sex: Male

DRUGS (2)
  1. QUETIAPINE [Suspect]
     Active Substance: QUETIAPINE
     Indication: Sleep disorder
  2. FLUOXETINE [Concomitant]
     Active Substance: FLUOXETINE HYDROCHLORIDE
     Dosage: 20 MG Q DD 1 TABL.?DAILY DOSE: 20 MILLIGRAM

REACTIONS (7)
  - Suicide attempt [Fatal]
  - Decreased appetite [Unknown]
  - Depersonalisation/derealisation disorder [Unknown]
  - Suicidal ideation [Unknown]
  - Fatigue [Unknown]
  - Social avoidant behaviour [Unknown]
  - Off label use [Unknown]

NARRATIVE: CASE EVENT DATE: 20230827
